FAERS Safety Report 22587441 (Version 1)
Quarter: 2023Q2

REPORT INFORMATION
  Report Type: Spontaneous
  Country: CN (occurrence: None)
  Receive Date: 20230612
  Receipt Date: 20230612
  Transmission Date: 20230722
  Serious: Yes (Hospitalization)
  Sender: FDA-Public Use
  Company Number: CN-ROCHE-3364869

PATIENT
  Age: 46 Year
  Sex: Female

DRUGS (9)
  1. GAZYVA [Suspect]
     Active Substance: OBINUTUZUMAB
     Indication: Diffuse large B-cell lymphoma
     Route: 042
     Dates: start: 20230515, end: 20230515
  2. MABTHERA [Suspect]
     Active Substance: RITUXIMAB
     Indication: Diffuse large B-cell lymphoma
     Dosage: R2-GDP FOR 3 CYCLES
     Route: 041
     Dates: start: 20230304
  3. LENALIDOMIDE [Suspect]
     Active Substance: LENALIDOMIDE
     Indication: Diffuse large B-cell lymphoma
     Route: 065
     Dates: start: 20230304
  4. LENALIDOMIDE [Suspect]
     Active Substance: LENALIDOMIDE
     Route: 048
     Dates: start: 20230515, end: 20230529
  5. GEMCITABINE HYDROCHLORIDE [Suspect]
     Active Substance: GEMCITABINE HYDROCHLORIDE
     Indication: Diffuse large B-cell lymphoma
     Dosage: R2-GDP FOR 3 CYCLES
     Route: 065
     Dates: start: 20230304
  6. GEMCITABINE HYDROCHLORIDE [Suspect]
     Active Substance: GEMCITABINE HYDROCHLORIDE
     Route: 041
     Dates: start: 20230515, end: 20230515
  7. CISPLATIN [Suspect]
     Active Substance: CISPLATIN
     Indication: Diffuse large B-cell lymphoma
     Dosage: R2-GDP FOR 3 CYCLES
     Route: 065
     Dates: start: 20230304
  8. CISPLATIN [Suspect]
     Active Substance: CISPLATIN
     Route: 041
     Dates: start: 20230515, end: 20230515
  9. DEXAMETHASONE [Concomitant]
     Active Substance: DEXAMETHASONE
     Indication: Diffuse large B-cell lymphoma
     Dosage: R2-GDP FOR 3 CYCLES
     Dates: start: 20230304

REACTIONS (2)
  - Myelosuppression [Recovering/Resolving]
  - Off label use [Unknown]

NARRATIVE: CASE EVENT DATE: 20230316
